FAERS Safety Report 24878276 (Version 1)
Quarter: 2025Q1

REPORT INFORMATION
  Report Type: Spontaneous
  Country: US (occurrence: US)
  Receive Date: 20250123
  Receipt Date: 20250123
  Transmission Date: 20250409
  Serious: Yes (Death, Other)
  Sender: AMGEN
  Company Number: US-AMGEN-USASP2025010585

PATIENT

DRUGS (2)
  1. BEVACIZUMAB [Suspect]
     Active Substance: BEVACIZUMAB
     Indication: Ovarian cancer recurrent
     Route: 065
  2. MIRVETUXIMAB SORAVTANSINE-GYNX [Suspect]
     Active Substance: MIRVETUXIMAB SORAVTANSINE-GYNX
     Indication: Ovarian cancer recurrent
     Dosage: 6 MILLIGRAM/KILOGRAM, Q3WK
     Route: 040

REACTIONS (26)
  - Septic shock [Fatal]
  - Pneumonitis [Fatal]
  - Adverse drug reaction [Unknown]
  - Neutropenia [Unknown]
  - Ovarian epithelial cancer recurrent [Unknown]
  - Cataract [Unknown]
  - Neurotoxicity [Unknown]
  - Neuropathy peripheral [Unknown]
  - Keratopathy [Unknown]
  - Dry eye [Unknown]
  - Vision blurred [Unknown]
  - Nausea [Unknown]
  - Diarrhoea [Unknown]
  - Asthenia [Unknown]
  - Arthralgia [Unknown]
  - Vomiting [Unknown]
  - Alanine aminotransferase increased [Unknown]
  - Photophobia [Unknown]
  - COVID-19 [Unknown]
  - Blood disorder [Unknown]
  - Aspartate aminotransferase increased [Unknown]
  - Fatigue [Unknown]
  - Constipation [Unknown]
  - Headache [Unknown]
  - Abdominal pain [Unknown]
  - Dysgeusia [Unknown]
